FAERS Safety Report 5102811-6 (Version None)
Quarter: 2006Q3

REPORT INFORMATION
  Report Type: 
  Country: None (occurrence: None)
  Receive Date: 20060907
  Receipt Date: 20060823
  Transmission Date: 20061208
  Serious: Yes (Other)
  Sender: FDA-Public Use
  Company Number: PHBS2006JP12914

PATIENT
  Age: 35 Year
  Sex: Male

DRUGS (8)
  1. CYCLOSPORINE [Suspect]
     Indication: CORD BLOOD TRANSPLANT THERAPY
     Dosage: 3 MG/KG/DAY
  2. METHOTREXATE [Suspect]
     Dosage: 15 MG/M2 ON DAY + 1; 10 MG/M2 ON DAYS +3 AND +6
  3. PREDNISOLONE [Suspect]
     Dosage: 1 MG/KG/DAY; 0.3 MG/KG DAY, 1 MG/KG/DAY
  4. CYCLOPHOSPHAMIDE [Concomitant]
  5. CYTARABINE [Concomitant]
  6. G-CSF (GRANULOCYTE COLONY STIMULATING FACTOR) [Concomitant]
  7. ACYCLOVIR [Concomitant]
  8. IRRADIATION (NO INGREDIENTS/SUBSTANCES) [Concomitant]

REACTIONS (16)
  - ACUTE GRAFT VERSUS HOST DISEASE IN INTESTINE [None]
  - ACUTE GRAFT VERSUS HOST DISEASE IN LIVER [None]
  - ACUTE GRAFT VERSUS HOST DISEASE IN SKIN [None]
  - CSF TEST ABNORMAL [None]
  - DIPLOPIA [None]
  - ENCEPHALITIS POST VARICELLA [None]
  - FACIAL PALSY [None]
  - GRAFT VERSUS HOST DISEASE [None]
  - HEARING IMPAIRED [None]
  - HERPES ZOSTER [None]
  - LUNG DISORDER [None]
  - NEUROTOXICITY [None]
  - OBLITERATIVE BRONCHIOLITIS [None]
  - PNEUMOMEDIASTINUM [None]
  - POST HERPETIC NEURALGIA [None]
  - RENAL IMPAIRMENT [None]
